FAERS Safety Report 17170103 (Version 1)
Quarter: 2019Q4

REPORT INFORMATION
  Report Type: Spontaneous
  Country: US (occurrence: US)
  Receive Date: 20191218
  Receipt Date: 20191218
  Transmission Date: 20200122
  Serious: Yes (Hospitalization)
  Sender: FDA-Public Use
  Company Number: NVSC2019US070476

PATIENT
  Sex: Female

DRUGS (3)
  1. KISQALI [Suspect]
     Active Substance: RIBOCICLIB
     Indication: BREAST CANCER FEMALE
     Dosage: 600 MG (TAKE 3 TABLETS BY MOUTH DAILY FOR 21 DAYS AND 7 DAYS OFF)
     Route: 048
     Dates: start: 201910
  2. KISQALI [Suspect]
     Active Substance: RIBOCICLIB
     Indication: INTRADUCTAL PROLIFERATIVE BREAST LESION
  3. KISQALI [Suspect]
     Active Substance: RIBOCICLIB
     Indication: BREAST CANCER FEMALE

REACTIONS (2)
  - Diabetes mellitus [Not Recovered/Not Resolved]
  - Product dose omission [Unknown]
